FAERS Safety Report 19083846 (Version 1)
Quarter: 2021Q2

REPORT INFORMATION
  Report Type: Spontaneous
  Country: FR (occurrence: FR)
  Receive Date: 20210401
  Receipt Date: 20210401
  Transmission Date: 20210717
  Serious: Yes (Hospitalization)
  Sender: FDA-Public Use
  Company Number: FR-TEVA-2021-FR-1895476

PATIENT
  Age: 81 Year
  Sex: Male
  Weight: 51 kg

DRUGS (13)
  1. STROMECTOL [Suspect]
     Active Substance: IVERMECTIN
     Indication: ACARODERMATITIS
     Dosage: 1 DF
     Route: 048
     Dates: end: 20210104
  2. ZOPICLONE [Concomitant]
     Active Substance: ZOPICLONE
     Dosage: 7.5 MG
     Route: 048
  3. MACROGOL 3350 [Concomitant]
     Active Substance: POLYETHYLENE GLYCOL 3350
     Dosage: 2 DF
     Route: 048
  4. STROMECTOL [Suspect]
     Active Substance: IVERMECTIN
     Dosage: 1 DF
     Route: 048
     Dates: end: 20210104
  5. METFORMINE [Concomitant]
     Active Substance: METFORMIN HYDROCHLORIDE
     Dosage: 1000 MG
     Route: 048
     Dates: end: 20210111
  6. DORZOLAMIDE BASE [Concomitant]
     Dosage: 2 GTT
     Route: 047
  7. PANTOPRAZOLE [Concomitant]
     Active Substance: PANTOPRAZOLE
     Dosage: 20 MG
     Route: 048
     Dates: end: 20210111
  8. SERESTA 10 MG, COMPRIME [Concomitant]
     Active Substance: OXAZEPAM
     Dosage: 20 MG
     Route: 048
     Dates: end: 20210111
  9. TOPISCAB [Suspect]
     Active Substance: PERMETHRIN
     Indication: ACARODERMATITIS
     Dosage: 1 DF
     Route: 003
     Dates: end: 20210104
  10. AMOXICILLINE BASE [Suspect]
     Active Substance: AMOXICILLIN
     Indication: URINARY TRACT INFECTION
     Route: 065
     Dates: start: 20201218, end: 20201224
  11. STROMECTOL [Suspect]
     Active Substance: IVERMECTIN
     Dosage: 1 DF
     Route: 048
     Dates: end: 20210104
  12. PARACETAMOL [Concomitant]
     Active Substance: ACETAMINOPHEN
     Dosage: 3000 MG
     Route: 048
  13. FINASTERIDE. [Concomitant]
     Active Substance: FINASTERIDE
     Dosage: 5 MG
     Route: 048

REACTIONS (1)
  - Pemphigoid [Recovering/Resolving]

NARRATIVE: CASE EVENT DATE: 20201221
